FAERS Safety Report 16836218 (Version 1)
Quarter: 2019Q3

REPORT INFORMATION
  Report Type: Spontaneous
  Country: US (occurrence: US)
  Receive Date: 20190921
  Receipt Date: 20190921
  Transmission Date: 20191005
  Serious: Yes (Other)
  Sender: FDA-Public Use
  Company Number: US-SHILPA MEDICARE LIMITED-SML-US-2019-00203

PATIENT
  Age: 50 Year
  Sex: Male

DRUGS (26)
  1. OXALIPLATIN. [Suspect]
     Active Substance: OXALIPLATIN
     Indication: RECTAL CANCER
     Route: 065
  2. RADIATION THERAPY [Suspect]
     Active Substance: RADIATION THERAPY
     Dosage: MAXIMUM LIMIT OF CGY OF SMALL BOWEL WAS 5141 POINTS
     Route: 065
  3. RADIATION THERAPY [Suspect]
     Active Substance: RADIATION THERAPY
     Dosage: GROSS TARGET VOLUME (GTV LN) SHOWED 4.5
     Route: 065
  4. RADIATION THERAPY [Suspect]
     Active Substance: RADIATION THERAPY
     Dosage: SMALL BOWEL DOSE CONSTRAINTS INCLUDE THE MAX DOSE WAS 5150 CGY AND ABSOLUTE VOLUME CONSTRAINT WAS 40
     Route: 065
  5. IRINOTECAN [Suspect]
     Active Substance: IRINOTECAN
     Indication: RECTAL CANCER
     Route: 065
  6. RADIATION THERAPY [Suspect]
     Active Substance: RADIATION THERAPY
     Dosage: SMALL BOWEL SQUARE 50 PERCENT WAS 0
     Route: 065
  7. RADIATION THERAPY [Suspect]
     Active Substance: RADIATION THERAPY
     Dosage: SMALL BOWEL V45 (CC) WAS 57
     Route: 065
  8. RADIATION THERAPY [Suspect]
     Active Substance: RADIATION THERAPY
     Dosage: PATIENT FEMORAL HEADS SQUARE 45 PERCENT WAS 0
     Route: 065
  9. RADIATION THERAPY [Suspect]
     Active Substance: RADIATION THERAPY
     Indication: RECTAL CANCER
     Dosage: RECTUM IORT (INTRAOPERATIVE RADIATION THERAPY) WAS 6027 CGY
     Route: 065
  10. RADIATION THERAPY [Suspect]
     Active Substance: RADIATION THERAPY
     Dosage: SMALL BOWEL V45 WAS 16 PERCENT
     Route: 065
  11. RADIATION THERAPY [Suspect]
     Active Substance: RADIATION THERAPY
     Dosage: MAXIMUM LIMIT OF CGY OF FEMORAL HEADS WAS 4234 POINTS
     Route: 065
  12. RADIATION THERAPY [Suspect]
     Active Substance: RADIATION THERAPY
     Dosage: MINIMUM DOSE TO PTV BOOST WAS 5812 CGY
     Route: 065
  13. RADIATION THERAPY [Suspect]
     Active Substance: RADIATION THERAPY
     Dosage: PATIENT BLADDER SQUARE 45 PERCENT WAS 32
     Route: 065
  14. RADIATION THERAPY [Suspect]
     Active Substance: RADIATION THERAPY
     Dosage: SMALL BOWEL V30 WAS 98 PERCENT
     Route: 065
  15. RADIATION THERAPY [Suspect]
     Active Substance: RADIATION THERAPY
     Dosage: MAXIMUM LIMIT OF CGY OF BLADDER SQUARE WAS 5750 POINTS
     Route: 065
  16. RADIATION THERAPY [Suspect]
     Active Substance: RADIATION THERAPY
     Dosage: PLANNED FRACTIONS WERE 28
     Route: 065
  17. RADIATION THERAPY [Suspect]
     Active Substance: RADIATION THERAPY
     Dosage: GROSS TARGET VOLUME (GTV) RECTAL SHOWED 61.7
     Route: 065
  18. RADIATION THERAPY [Suspect]
     Active Substance: RADIATION THERAPY
     Dosage: PLANNING TARGET VOLUME (PTV) WAS 27.8
     Route: 065
  19. RADIATION THERAPY [Suspect]
     Active Substance: RADIATION THERAPY
     Dosage: MAXIMUM DOSE TO PTV BOOST WAS 6197 CGY
     Route: 065
  20. CAPECITABINE, UNKNOWN [Suspect]
     Active Substance: CAPECITABINE
     Indication: RECTAL CANCER
     Route: 065
  21. RADIATION THERAPY [Suspect]
     Active Substance: RADIATION THERAPY
     Dosage: PLANNING TARGET VOLUME (PTV) BOOST DATA INCLUDES D 98 PERCENT WAS 99 AND D 95 PERCENT WAS 100
     Route: 065
  22. RADIATION THERAPY [Suspect]
     Active Substance: RADIATION THERAPY
     Dosage: MEAN DOSE TO PLANNING TARGET VOLUME (PTV) BOOST WAS 6081 CGY
     Route: 065
  23. RADIATION THERAPY [Suspect]
     Active Substance: RADIATION THERAPY
     Dosage: CUMULATIVE TOTAL DOSE (CGY) WAS 6020 CGY
     Route: 065
  24. BEVACIZUMAB. [Suspect]
     Active Substance: BEVACIZUMAB
     Indication: RECTAL CANCER
     Route: 065
  25. LEUCOVORIN. [Suspect]
     Active Substance: LEUCOVORIN
     Indication: RECTAL CANCER
     Route: 065
  26. 5 FLUOROURACIL [Suspect]
     Active Substance: FLUOROURACIL
     Indication: RECTAL CANCER
     Route: 065

REACTIONS (2)
  - Disease progression [Unknown]
  - Palmar-plantar erythrodysaesthesia syndrome [Unknown]
